FAERS Safety Report 8972431 (Version 2)
Quarter: 2013Q1

REPORT INFORMATION
  Report Type: Spontaneous
  Country: CL (occurrence: CL)
  Receive Date: 20121219
  Receipt Date: 20130102
  Transmission Date: 20140127
  Serious: Yes (Other)
  Sender: FDA-Public Use
  Company Number: CL-PFIZER INC-2012303422

PATIENT
  Age: 64 Year
  Sex: Female

DRUGS (3)
  1. AZULFIDINE [Suspect]
     Indication: COLITIS MICROSCOPIC
     Dosage: 1000 MG, 3X/DAY
     Dates: start: 20121113, end: 20121209
  2. OMEPRAZOLE [Concomitant]
     Dosage: UNK
  3. LOSARTAN [Concomitant]
     Dosage: 1 DF, 1X/DAY

REACTIONS (3)
  - Asthenia [Recovered/Resolved]
  - Dizziness [Recovering/Resolving]
  - Micturition disorder [Recovered/Resolved]
